FAERS Safety Report 6266185-X (Version None)
Quarter: 2009Q3

REPORT INFORMATION
  Report Type: 
  Country: None (occurrence: None)
  Receive Date: 20090713
  Receipt Date: 20090708
  Transmission Date: 20100115
  Serious: Yes (Life-Threatening)
  Sender: FDA-Public Use
  Company Number: US-CELGENEUS-163-21880-09051116

PATIENT
  Sex: Male

DRUGS (3)
  1. REVLIMID [Suspect]
     Indication: MYELOFIBROSIS
     Route: 048
     Dates: start: 20070301
  2. REVLIMID [Suspect]
     Route: 048
     Dates: start: 20080501, end: 20090514
  3. REVLIMID [Suspect]
     Route: 048
     Dates: start: 20020101

REACTIONS (1)
  - BLOOD COUNT ABNORMAL [None]
